FAERS Safety Report 7324251-1 (Version None)
Quarter: 2011Q1

REPORT INFORMATION
  Report Type: 
  Country: None (occurrence: None)
  Receive Date: 20110301
  Receipt Date: 20110221
  Transmission Date: 20110831
  Serious: Yes (Hospitalization)
  Sender: FDA-Public Use
  Company Number: SE-MEDIMMUNE-MEDI-0012467

PATIENT
  Sex: Male
  Weight: 4.09 kg

DRUGS (5)
  1. SYNAGIS [Suspect]
     Route: 030
     Dates: start: 20101208, end: 20101208
  2. SPIRONOLACTONE [Concomitant]
  3. SYNAGIS [Suspect]
     Route: 030
     Dates: start: 20110105, end: 20110105
  4. SYNAGIS [Suspect]
     Route: 030
     Dates: start: 20110203, end: 20110203
  5. FUROSEMIDE [Concomitant]

REACTIONS (2)
  - VARICELLA [None]
  - RESPIRATORY SYNCYTIAL VIRUS INFECTION [None]
